FAERS Safety Report 4454185-1 (Version None)
Quarter: 2004Q3

REPORT INFORMATION
  Report Type: 
  Country: None (occurrence: None)
  Receive Date: 20040826
  Receipt Date: 20040719
  Transmission Date: 20050211
  Serious: No
  Sender: FDA-Public Use
  Company Number: WAES 0407USA01597

PATIENT
  Age: 71 Year
  Sex: Female

DRUGS (6)
  1. ZETIA [Suspect]
     Indication: BLOOD CHOLESTEROL INCREASED
     Dosage: 10 MG/PO
     Route: 048
     Dates: start: 20040601, end: 20040718
  2. EVISTA [Concomitant]
  3. HYDRODIURIL [Concomitant]
  4. PRINIVIL [Concomitant]
  5. TIAZAC [Concomitant]
  6. NADOLOL [Concomitant]

REACTIONS (2)
  - BACK PAIN [None]
  - FATIGUE [None]
